FAERS Safety Report 6332512-8 (Version None)
Quarter: 2009Q3

REPORT INFORMATION
  Report Type: 
  Country: None (occurrence: None)
  Receive Date: 20090828
  Receipt Date: 20090127
  Transmission Date: 20100115
  Serious: No
  Sender: FDA-Public Use
  Company Number: A0765466A

PATIENT
  Age: 61 Year
  Sex: Female

DRUGS (4)
  1. MALARONE [Suspect]
     Indication: PROPHYLAXIS
     Route: 048
     Dates: start: 20090104, end: 20090125
  2. PREVACID [Concomitant]
  3. TYLENOL (CAPLET) [Concomitant]
  4. ASPIRIN [Concomitant]

REACTIONS (1)
  - WHITE BLOOD CELL COUNT INCREASED [None]
